FAERS Safety Report 6231760-5 (Version None)
Quarter: 2009Q2

REPORT INFORMATION
  Report Type: 
  Country: None (occurrence: None)
  Receive Date: 20090616
  Receipt Date: 20090602
  Transmission Date: 20091009
  Serious: Yes (Other)
  Sender: FDA-Public Use
  Company Number: PHHY2009DE21613

PATIENT
  Sex: Female

DRUGS (1)
  1. ACLASTA [Suspect]
     Dosage: 5 MG
     Dates: start: 20090529, end: 20090529

REACTIONS (3)
  - ARTHRITIS [None]
  - INFLUENZA LIKE ILLNESS [None]
  - JOINT EFFUSION [None]
